FAERS Safety Report 19020576 (Version 39)
Quarter: 2024Q4

REPORT INFORMATION
  Report Type: Report from Study
  Country: CO (occurrence: CO)
  Receive Date: 20210317
  Receipt Date: 20241219
  Transmission Date: 20250114
  Serious: Yes (Hospitalization, Disabling, Other)
  Sender: TAKEDA
  Company Number: CO-TAKEDA-CO202033484

PATIENT
  Sex: Male
  Weight: 66 kg

DRUGS (2)
  1. VELAGLUCERASE ALFA [Suspect]
     Active Substance: VELAGLUCERASE ALFA
     Indication: Gaucher^s disease
     Dosage: 1600 INTERNATIONAL UNIT, Q2WEEKS
     Dates: start: 20130813
  2. ZOLEDRONIC ACID [Concomitant]
     Active Substance: ZOLEDRONIC ACID
     Dosage: UNK

REACTIONS (52)
  - Thyroid cancer [Unknown]
  - Mobility decreased [Recovering/Resolving]
  - Inflammation [Recovering/Resolving]
  - Pain in extremity [Recovered/Resolved]
  - Feeling hot [Recovering/Resolving]
  - Cardiac infection [Recovering/Resolving]
  - Cough [Unknown]
  - Neoplasm malignant [Unknown]
  - Choking [Unknown]
  - Osteomyelitis [Unknown]
  - Post procedural complication [Unknown]
  - Infection [Unknown]
  - Muscle abscess [Unknown]
  - Abdominal discomfort [Not Recovered/Not Resolved]
  - Dose calculation error [Unknown]
  - Inappropriate schedule of product administration [Unknown]
  - Incorrect dose administered [Unknown]
  - Oropharyngeal pain [Unknown]
  - Abdominal pain [Not Recovered/Not Resolved]
  - Influenza [Recovering/Resolving]
  - Abdominal mass [Not Recovered/Not Resolved]
  - Weight increased [Unknown]
  - Oropharyngeal discomfort [Unknown]
  - Nasopharyngitis [Recovering/Resolving]
  - Rhinorrhoea [Not Recovered/Not Resolved]
  - Scar inflammation [Unknown]
  - Fracture [Recovering/Resolving]
  - Bacterial infection [Recovering/Resolving]
  - Limb injury [Recovering/Resolving]
  - Osteoarthritis [Unknown]
  - Osteoporosis [Unknown]
  - Weight decreased [Unknown]
  - Fall [Recovering/Resolving]
  - Cholelithiasis [Unknown]
  - Influenza like illness [Recovered/Resolved]
  - Blood cholesterol increased [Unknown]
  - Blood glucose increased [Unknown]
  - Erythema [Not Recovered/Not Resolved]
  - Emotional distress [Unknown]
  - Anxiety [Recovered/Resolved]
  - Muscle fatigue [Not Recovered/Not Resolved]
  - Prescribed underdose [Unknown]
  - Product use issue [Unknown]
  - Anger [Recovered/Resolved]
  - Burning sensation [Recovered/Resolved]
  - Sunburn [Recovered/Resolved]
  - Product dose omission issue [Unknown]
  - Treatment noncompliance [Unknown]
  - Insurance issue [Unknown]
  - Arthralgia [Recovered/Resolved]
  - Fatigue [Unknown]
  - Headache [Recovered/Resolved]

NARRATIVE: CASE EVENT DATE: 20140101
